FAERS Safety Report 12619526 (Version 1)
Quarter: 2016Q3

REPORT INFORMATION
  Report Type: Report from Study
  Country: US (occurrence: US)
  Receive Date: 20160803
  Receipt Date: 20160803
  Transmission Date: 20161109
  Serious: Yes (Death)
  Sender: FDA-Public Use
  Company Number: US-ASTELLAS-2016US029830

PATIENT
  Age: 76 Year
  Sex: Female

DRUGS (2)
  1. HYGROTON [Concomitant]
     Active Substance: CHLORTHALIDONE
     Indication: BLOOD PRESSURE MEASUREMENT
     Dosage: UNK UNK, UNKNOWN FREQ.
     Route: 065
  2. ERLOTINIB [Suspect]
     Active Substance: ERLOTINIB
     Indication: LUNG CARCINOMA CELL TYPE UNSPECIFIED STAGE IV
     Dosage: UNK UNK, UNKNOWN FREQ.
     Route: 048
     Dates: start: 201512, end: 20160118

REACTIONS (9)
  - Death [Fatal]
  - Burning sensation [Unknown]
  - Pruritus [Not Recovered/Not Resolved]
  - Hyperaesthesia [Not Recovered/Not Resolved]
  - Pain [Unknown]
  - Dry skin [Not Recovered/Not Resolved]
  - Skin exfoliation [Unknown]
  - Rash [Not Recovered/Not Resolved]
  - Blister [Unknown]

NARRATIVE: CASE EVENT DATE: 20151217
